FAERS Safety Report 21854152 (Version 1)
Quarter: 2023Q1

REPORT INFORMATION
  Report Type: Spontaneous
  Country: GB (occurrence: GB)
  Receive Date: 20230112
  Receipt Date: 20230112
  Transmission Date: 20230417
  Serious: Yes (Hospitalization)
  Sender: FDA-Public Use
  Company Number: GB-MYLANLABS-2022M1141553

PATIENT
  Age: 63 Year
  Sex: Male

DRUGS (2)
  1. LATANOPROST [Suspect]
     Active Substance: LATANOPROST
     Indication: Intraocular pressure fluctuation
     Dosage: UNK, 0.005%
     Route: 065
  2. BIMATOPROST [Suspect]
     Active Substance: BIMATOPROST
     Indication: Intraocular pressure fluctuation
     Dosage: UNK
     Route: 065

REACTIONS (5)
  - Ocular surface disease [Recovering/Resolving]
  - Condition aggravated [Recovering/Resolving]
  - Dry eye [Recovering/Resolving]
  - Intentional product misuse [Recovering/Resolving]
  - Treatment noncompliance [Recovering/Resolving]
